FAERS Safety Report 4433327-8 (Version None)
Quarter: 2004Q3

REPORT INFORMATION
  Report Type: 
  Country: None (occurrence: None)
  Receive Date: 20040823
  Receipt Date: 20040809
  Transmission Date: 20050211
  Serious: Yes (Other)
  Sender: FDA-Public Use
  Company Number: A0521716A

PATIENT
  Age: 41 Year
  Sex: Female

DRUGS (3)
  1. NICODERM CQ [Suspect]
     Indication: EX-SMOKER
     Dosage: 7 MG/PER DAY/TRANSDERMAL
     Route: 062
     Dates: start: 20040601, end: 20040618
  2. FEXOFENADINE HYDROCHLORID [Concomitant]
  3. VENLAFAXINE HCL [Concomitant]

REACTIONS (2)
  - ANXIETY [None]
  - ATRIAL FIBRILLATION [None]
